FAERS Safety Report 15656141 (Version 3)
Quarter: 2019Q1

REPORT INFORMATION
  Report Type: Report from Study
  Country: ES (occurrence: ES)
  Receive Date: 20181126
  Receipt Date: 20190227
  Transmission Date: 20190417
  Serious: Yes (Other)
  Sender: FDA-Public Use
  Company Number: ES-PFIZER INC-2018254230

PATIENT
  Age: 57 Year

DRUGS (2)
  1. PACLITAXEL. [Suspect]
     Active Substance: PACLITAXEL
     Indication: METASTATIC NEOPLASM
     Dosage: UNK
     Route: 042
     Dates: start: 20170216
  2. BEVACIZUMAB. [Suspect]
     Active Substance: BEVACIZUMAB
     Indication: METASTATIC NEOPLASM
     Dosage: UNK
     Route: 042
     Dates: start: 20170216

REACTIONS (25)
  - Epistaxis [Recovered/Resolved]
  - Malaise [Recovered/Resolved]
  - Rectal haemorrhage [Recovered/Resolved]
  - Dysuria [Recovered/Resolved]
  - Mouth haemorrhage [Recovered/Resolved]
  - Fatigue [Recovered/Resolved]
  - Arthralgia [Recovered/Resolved]
  - Nail toxicity [Recovered/Resolved]
  - Decreased appetite [Recovered/Resolved]
  - Alopecia [Not Recovered/Not Resolved]
  - Lymphopenia [Recovered/Resolved]
  - Hypertransaminasaemia [Not Recovered/Not Resolved]
  - Pain in extremity [Recovered/Resolved]
  - Neurotoxicity [Recovered/Resolved]
  - Dyspepsia [Recovered/Resolved]
  - Paraesthesia [Not Recovered/Not Resolved]
  - Myalgia [Recovered/Resolved]
  - Dysgeusia [Recovered/Resolved]
  - Asthenia [Not Recovered/Not Resolved]
  - Gingival bleeding [Recovered/Resolved]
  - Arthralgia [Recovered/Resolved]
  - Aspartate aminotransferase increased [Not Recovered/Not Resolved]
  - Alanine aminotransferase increased [Not Recovered/Not Resolved]
  - Influenza like illness [Recovered/Resolved]
  - Nausea [Recovered/Resolved]

NARRATIVE: CASE EVENT DATE: 20170427
